FAERS Safety Report 10029377 (Version 3)
Quarter: 2014Q2

REPORT INFORMATION
  Report Type: Spontaneous
  Country: JP (occurrence: JP)
  Receive Date: 20140322
  Receipt Date: 20140624
  Transmission Date: 20141212
  Serious: Yes (Hospitalization, Other)
  Sender: FDA-Public Use
  Company Number: PHHY2014JP032656

PATIENT
  Sex: Male

DRUGS (1)
  1. ULTIBRO BREEZHALER [Suspect]
     Indication: EMPHYSEMA
     Dosage: 1 DF, QD
     Route: 055
     Dates: start: 20140226, end: 20140301

REACTIONS (2)
  - Cardiac disorder [Unknown]
  - Urinary retention [Unknown]
